FAERS Safety Report 10233857 (Version 1)
Quarter: 2014Q2

REPORT INFORMATION
  Report Type: Report from Study
  Country: US (occurrence: US)
  Receive Date: 20140612
  Receipt Date: 20140612
  Transmission Date: 20141212
  Serious: Yes (Hospitalization, Other)
  Sender: FDA-Public Use
  Company Number: US-BAXTER-2014BAX028883

PATIENT
  Age: 68 Year
  Sex: 0

DRUGS (3)
  1. CYTOXAN (CYCLOPHOSPHAMIDE FOR INJECTION, USP)  1 GRAM VIAL (LYOPHILIZE [Suspect]
     Indication: PLASMA CELL MYELOMA
     Dosage: DAYS 1, 4, 8, 11
     Route: 042
     Dates: start: 20130618
  2. DECADRON [Suspect]
     Indication: PLASMA CELL MYELOMA
     Dosage: DAYS 1, 4, 8, 11
     Route: 048
     Dates: start: 20130521
  3. BORTEZOMIB [Suspect]
     Indication: PLASMA CELL MYELOMA
     Dosage: DAYS 1, 4, 8, 11
     Route: 042
     Dates: start: 20130521

REACTIONS (4)
  - Asthenia [Unknown]
  - Chest discomfort [Unknown]
  - Atrial fibrillation [Unknown]
  - Pancytopenia [Unknown]
